FAERS Safety Report 8536039-4 (Version None)
Quarter: 2012Q2

REPORT INFORMATION
  Report Type: 
  Country: None (occurrence: None)
  Receive Date: 20120412
  Receipt Date: 20081023
  Transmission Date: 20120825
  Serious: Yes (Other)
  Sender: FDA-Public Use
  Company Number: PHEH2008US11780

PATIENT
  Sex: Male

DRUGS (1)
  1. CLOZARIL [Suspect]
     Dosage: 400 MG, QD

REACTIONS (3)
  - CONVULSION [None]
  - ABNORMAL BEHAVIOUR [None]
  - WHITE BLOOD CELL COUNT DECREASED [None]
